FAERS Safety Report 14586382 (Version 1)
Quarter: 2018Q1

REPORT INFORMATION
  Report Type: Spontaneous
  Country: US (occurrence: US)
  Receive Date: 20180301
  Receipt Date: 20180301
  Transmission Date: 20180509
  Serious: No
  Sender: FDA-Public Use
  Company Number: US-TEVA-766143ACC

PATIENT
  Sex: Female

DRUGS (1)
  1. NIFEDIPINE. [Suspect]
     Active Substance: NIFEDIPINE
     Dates: start: 2010

REACTIONS (3)
  - Pruritus [Recovered/Resolved]
  - Contusion [Recovered/Resolved]
  - Product substitution issue [Unknown]
